FAERS Safety Report 19773195 (Version 2)
Quarter: 2024Q3

REPORT INFORMATION
  Report Type: Report from Study
  Country: CA (occurrence: None)
  Receive Date: 20210901
  Receipt Date: 20240801
  Transmission Date: 20241016
  Serious: Yes (Other)
  Sender: ASTRAZENECA
  Company Number: 2021A011507

PATIENT
  Sex: Female

DRUGS (6)
  1. SYMBICORT [Suspect]
     Active Substance: BUDESONIDE\FORMOTEROL FUMARATE DIHYDRATE
     Indication: Product used for unknown indication
     Dosage: 2 DOSAGE FORMS,2 EVERY 1 (DAYS)
     Route: 055
  2. MEPOLIZUMAB [Suspect]
     Active Substance: MEPOLIZUMAB
     Indication: Product used for unknown indication
     Dosage: 100 MG, Z(MONTHLY)
     Route: 042
     Dates: start: 20170314
  3. MEPOLIZUMAB [Suspect]
     Active Substance: MEPOLIZUMAB
     Indication: Asthma
     Dosage: 100 MG, Z(MONTHLY)
     Route: 042
     Dates: start: 20170314
  4. MEPOLIZUMAB [Suspect]
     Active Substance: MEPOLIZUMAB
     Indication: Product used for unknown indication
     Route: 042
  5. MEPOLIZUMAB [Suspect]
     Active Substance: MEPOLIZUMAB
     Indication: Asthma
     Route: 042
  6. VENTOLIN [Suspect]
     Active Substance: ALBUTEROL SULFATE
     Indication: Product used for unknown indication
     Dosage: UNK, AS NEEDED
     Route: 065

REACTIONS (9)
  - Arthralgia [Unknown]
  - Asthma [Unknown]
  - Diarrhoea [Unknown]
  - Eczema [Unknown]
  - Eye irritation [Unknown]
  - Eye swelling [Unknown]
  - Gastrointestinal disorder [Unknown]
  - Rash [Unknown]
  - Therapeutic product effect incomplete [Unknown]
